FAERS Safety Report 8531715 (Version 3)
Quarter: 2014Q3

REPORT INFORMATION
  Report Type: Spontaneous
  Country: BR (occurrence: BR)
  Receive Date: 20120426
  Receipt Date: 20140728
  Transmission Date: 20150326
  Serious: Yes (Other)
  Sender: FDA-Public Use
  Company Number: BR-RANBAXY-2012R5-55629

PATIENT
  Age: 5 Year
  Sex: Female
  Weight: 19 kg

DRUGS (2)
  1. AMOXICILLIN/CLAVULANATE POTASSIUM [Suspect]
     Active Substance: AMOXICILLIN\CLAVULANATE POTASSIUM
     Indication: INCREASED UPPER AIRWAY SECRETION
     Dosage: 5 ML, BID
     Route: 048
     Dates: start: 20120403, end: 20120409
  2. PREDSIM [Concomitant]
     Active Substance: PREDNISOLONE
     Indication: COUGH
     Dosage: 5 ML, BID
     Route: 065
     Dates: start: 20120403, end: 20120405

REACTIONS (6)
  - Ear infection [Recovered/Resolved]
  - Product colour issue [Unknown]
  - Medication error [Unknown]
  - Drug ineffective [Unknown]
  - Ear pain [Recovered/Resolved]
  - Increased bronchial secretion [Recovered/Resolved]

NARRATIVE: CASE EVENT DATE: 20120404
